FAERS Safety Report 25346963 (Version 1)
Quarter: 2025Q2

REPORT INFORMATION
  Report Type: Spontaneous
  Country: US (occurrence: None)
  Receive Date: 20250521
  Receipt Date: 20250521
  Transmission Date: 20250716
  Serious: Yes (Disabling)
  Sender: FDA-CTU
  Company Number: None

PATIENT
  Age: 24 Year
  Sex: Male
  Weight: 69.75 kg

DRUGS (1)
  1. CIPROFLOXACIN [Suspect]
     Active Substance: CIPROFLOXACIN
     Indication: Lymphadenopathy
     Dates: start: 20180215, end: 20180222

REACTIONS (8)
  - Muscle spasms [None]
  - Back pain [None]
  - Nausea [None]
  - Brain fog [None]
  - Amnesia [None]
  - Arthralgia [None]
  - Discomfort [None]
  - Formication [None]

NARRATIVE: CASE EVENT DATE: 20180215
